FAERS Safety Report 18383914 (Version 1)
Quarter: 2020Q4

REPORT INFORMATION
  Report Type: Report from Study
  Country: CZ (occurrence: CZ)
  Receive Date: 20201014
  Receipt Date: 20201014
  Transmission Date: 20210114
  Serious: Yes (Other)
  Sender: FDA-Public Use
  Company Number: CZ-TEVA-2020-CZ-1838082

PATIENT
  Age: 29 Year
  Sex: Male

DRUGS (1)
  1. COPAXONE [Suspect]
     Active Substance: GLATIRAMER ACETATE
     Indication: CLINICALLY ISOLATED SYNDROME
     Route: 058
     Dates: start: 20200406

REACTIONS (4)
  - Fear [Not Recovered/Not Resolved]
  - Fatigue [Unknown]
  - Paraesthesia [Recovered/Resolved]
  - Dyspnoea [Recovered/Resolved]

NARRATIVE: CASE EVENT DATE: 20201005
